FAERS Safety Report 8285454-5 (Version None)
Quarter: 2012Q2

REPORT INFORMATION
  Report Type: 
  Country: None (occurrence: None)
  Receive Date: 20120413
  Receipt Date: 20111011
  Transmission Date: 20120825
  Serious: No
  Sender: FDA-Public Use
  Company Number: US-ASTRAZENECA-2010SE04460

PATIENT
  Age: 66 Year
  Sex: Female
  Weight: 58.1 kg

DRUGS (11)
  1. SEROQUEL [Suspect]
     Route: 048
     Dates: start: 20100115
  2. SEROQUEL [Suspect]
     Indication: BIPOLAR DISORDER
     Route: 048
  3. HYDROCHLOROTHIAZIDE [Concomitant]
  4. NEXIUM [Suspect]
     Indication: HIATUS HERNIA
     Route: 048
  5. LORCET-HD [Concomitant]
  6. CLONAZEPAM [Concomitant]
  7. FENOFIBRATE [Concomitant]
  8. SEROQUEL [Suspect]
     Route: 048
     Dates: start: 20100115
  9. SIMVASTATIN [Concomitant]
  10. SEROQUEL [Suspect]
     Indication: DEPRESSION
     Route: 048
  11. PRAVASTATIN [Concomitant]

REACTIONS (11)
  - ULCER [None]
  - DRUG DOSE OMISSION [None]
  - MOOD SWINGS [None]
  - OESOPHAGEAL DISORDER [None]
  - FEELING ABNORMAL [None]
  - NAUSEA [None]
  - DIARRHOEA [None]
  - FIBROMYALGIA [None]
  - OSTEOPOROSIS [None]
  - INSOMNIA [None]
  - RHEUMATOID ARTHRITIS [None]
